FAERS Safety Report 6807591-1 (Version None)
Quarter: 2010Q2

REPORT INFORMATION
  Report Type: 
  Country: None (occurrence: None)
  Receive Date: 20100629
  Receipt Date: 20081105
  Transmission Date: 20101027
  Serious: No
  Sender: FDA-Public Use
  Company Number: US-PFIZER INC-2008094508

PATIENT
  Sex: Male
  Weight: 81.8 kg

DRUGS (1)
  1. VIAGRA [Suspect]
     Indication: ERECTILE DYSFUNCTION

REACTIONS (4)
  - DRUG INEFFECTIVE [None]
  - FEELING JITTERY [None]
  - MALAISE [None]
  - NERVOUSNESS [None]
